FAERS Safety Report 5369881-1 (Version None)
Quarter: 2007Q2

REPORT INFORMATION
  Report Type: 
  Country: None (occurrence: None)
  Receive Date: 20070621
  Receipt Date: 20070608
  Transmission Date: 20071010
  Serious: Yes (Hospitalization)
  Sender: FDA-Public Use
  Company Number: GXKR2006GB06425

PATIENT
  Age: 18 Year
  Sex: Female

DRUGS (3)
  1. CEFUROXIME ACETIL (NGX)(CEFUROXIME) UNKNOWN [Suspect]
     Indication: PYREXIA
  2. METRONIDAZOLE [Suspect]
     Indication: PYREXIA
  3. ANESTHETICS (NO INGREDIENTS/SUBSTANCES) [Suspect]
     Indication: APPENDICECTOMY

REACTIONS (12)
  - ABORTION SPONTANEOUS [None]
  - ACUTE RESPIRATORY DISTRESS SYNDROME [None]
  - CHOLELITHIASIS [None]
  - DRUG EXPOSURE DURING PREGNANCY [None]
  - ENDOMETRIAL HYPERTROPHY [None]
  - LOBAR PNEUMONIA [None]
  - PANCREATIC ABSCESS [None]
  - PANCREATITIS ACUTE [None]
  - PNEUMONIA [None]
  - STAPHYLOCOCCAL ABSCESS [None]
  - TACHYCARDIA [None]
  - VAGINAL HAEMORRHAGE [None]
